FAERS Safety Report 15890232 (Version 3)
Quarter: 2019Q1

REPORT INFORMATION
  Report Type: Report from Study
  Country: None (occurrence: BE)
  Receive Date: 20190130
  Receipt Date: 20190222
  Transmission Date: 20190417
  Serious: Yes (Hospitalization)
  Sender: FDA-Public Use
  Company Number: BE-ABBVIE-19S-013-2639809-00

PATIENT
  Sex: Male

DRUGS (4)
  1. DUODOPA [Suspect]
     Active Substance: CARBIDOPA\LEVODOPA
     Indication: PARKINSON^S DISEASE
     Dosage: MD= 10ML, CD= 3.5ML/HR DURING 16HRS, ED= 1ML
     Route: 050
     Dates: start: 20180716, end: 20180717
  2. DUODOPA [Suspect]
     Active Substance: CARBIDOPA\LEVODOPA
     Dosage: MD= 14ML, CD= 4.3ML/HR DURING 16HRS, ED= 2ML
     Route: 050
     Dates: start: 20181214, end: 20190122
  3. DUODOPA [Suspect]
     Active Substance: CARBIDOPA\LEVODOPA
     Dosage: MD= 14ML, CD= 4.4ML/HR DURING 16HRS, ED= 2ML
     Route: 050
     Dates: start: 20190122
  4. DUODOPA [Suspect]
     Active Substance: CARBIDOPA\LEVODOPA
     Dosage: DOSES CONTINUOUSLY MONITORED AND ADAPTED
     Route: 050
     Dates: start: 20180717, end: 20181214

REACTIONS (5)
  - Freezing phenomenon [Unknown]
  - Device issue [Unknown]
  - Impaired gastric emptying [Unknown]
  - Intestinal stenosis [Unknown]
  - Small intestinal obstruction [Recovering/Resolving]
